FAERS Safety Report 10874304 (Version 1)
Quarter: 2015Q1

REPORT INFORMATION
  Report Type: Spontaneous
  Country: US (occurrence: None)
  Receive Date: 20150223
  Receipt Date: 20150223
  Transmission Date: 20150721
  Serious: No
  Sender: FDA-Public Use
  Company Number: None

PATIENT
  Sex: Female
  Weight: 66.23 kg

DRUGS (2)
  1. CANDESARTIN GENERIC 16MG [Suspect]
     Active Substance: CANDESARTAN
     Indication: MIGRAINE
     Route: 048
     Dates: start: 2013
  2. CANDESARTIN GENERIC 16MG [Suspect]
     Active Substance: CANDESARTAN
     Indication: HYPERTENSION
     Route: 048
     Dates: start: 2013

REACTIONS (4)
  - Product substitution issue [None]
  - Treatment failure [None]
  - Blood pressure inadequately controlled [None]
  - Headache [None]

NARRATIVE: CASE EVENT DATE: 2013
